FAERS Safety Report 7804076-0 (Version None)
Quarter: 2011Q4

REPORT INFORMATION
  Report Type: 
  Country: None (occurrence: None)
  Receive Date: 20111010
  Receipt Date: 20111005
  Transmission Date: 20120403
  Serious: Yes (Hospitalization, Other)
  Sender: FDA-Public Use
  Company Number: US-AMGEN-USASP2011015287

PATIENT
  Age: 74 Year
  Sex: Female

DRUGS (9)
  1. NPLATE [Suspect]
     Indication: IDIOPATHIC THROMBOCYTOPENIC PURPURA
     Dosage: 10 MUG/KG, UNK
     Dates: start: 20101201, end: 20110216
  2. PREDNISONE [Concomitant]
  3. GLYBURIDE [Concomitant]
  4. MIRAPEX [Concomitant]
  5. NOVOLOG [Concomitant]
  6. ARICEPT [Concomitant]
  7. RITUXAN [Concomitant]
  8. LANTUS [Concomitant]
  9. LEVOXYL [Concomitant]

REACTIONS (10)
  - MASS [None]
  - DRUG INEFFECTIVE [None]
  - HAEMOGLOBIN DECREASED [None]
  - CONTUSION [None]
  - THERAPEUTIC RESPONSE DECREASED [None]
  - GAIT DISTURBANCE [None]
  - FATIGUE [None]
  - DYSPNOEA [None]
  - ASTHENIA [None]
  - HAEMOLYSIS [None]
